FAERS Safety Report 4342702-1 (Version None)
Quarter: 2004Q1

REPORT INFORMATION
  Report Type: 
  Country: None (occurrence: None)
  Receive Date: 20040213
  Receipt Date: 20031016
  Transmission Date: 20041129
  Serious: Yes (Other)
  Sender: FDA-Public Use
  Company Number: 349456

PATIENT
  Sex: Male

DRUGS (1)
  1. PEGASYS [Suspect]
     Dosage: SUBCUTANEOUS
     Route: 057
     Dates: start: 20021115

REACTIONS (2)
  - IDIOPATHIC THROMBOCYTOPENIC PURPURA [None]
  - PLATELET COUNT DECREASED [None]
